FAERS Safety Report 6859374-4 (Version None)
Quarter: 2010Q3

REPORT INFORMATION
  Report Type: 
  Country: None (occurrence: None)
  Receive Date: 20100719
  Receipt Date: 20080412
  Transmission Date: 20110219
  Serious: No
  Sender: FDA-Public Use
  Company Number: US-PFIZER INC-2008018176

PATIENT
  Sex: Male
  Weight: 101.2 kg

DRUGS (1)
  1. CHANTIX [Suspect]
     Indication: SMOKING CESSATION THERAPY
     Route: 048
     Dates: start: 20080117

REACTIONS (5)
  - DEPRESSION [None]
  - DEPRESSIVE SYMPTOM [None]
  - DISTURBANCE IN SOCIAL BEHAVIOUR [None]
  - DRUG WITHDRAWAL SYNDROME [None]
  - NERVOUSNESS [None]
